FAERS Safety Report 7491872-5 (Version None)
Quarter: 2011Q1

REPORT INFORMATION
  Report Type: 
  Country: None (occurrence: None)
  Receive Date: 20110318
  Receipt Date: 20100914
  Transmission Date: 20110831
  Serious: Yes (Other)
  Sender: FDA-Public Use
  Company Number: 2-0910-70

PATIENT
  Age: 79 Year
  Sex: Female

DRUGS (12)
  1. DERMA-SMOOTHE/FS [Suspect]
  2. DERMA-SMOOTHE/FS [Suspect]
  3. HYDROCORTISONE LOTION [Concomitant]
  4. VYNOXIN [Concomitant]
  5. DERMA-SMOOTHE/FS [Suspect]
     Indication: DRY SKIN
     Dosage: TOPICAL
     Route: 061
  6. DERMA-SMOOTHE/FS [Suspect]
     Indication: SCAB
     Dosage: TOPICAL
     Route: 061
  7. THORICYMIDE [Concomitant]
  8. LEVOTHYROXINE SODIUM [Concomitant]
  9. POTASSIUM CHLORIDE [Concomitant]
  10. WARFARIN SODIUM [Concomitant]
  11. DERMA-SMOOTHE/FS [Suspect]
  12. COENZYME Q10 [Concomitant]

REACTIONS (1)
  - ALOPECIA [None]
